FAERS Safety Report 5821248-5 (Version None)
Quarter: 2008Q3

REPORT INFORMATION
  Report Type: 
  Country: None (occurrence: None)
  Receive Date: 20080722
  Receipt Date: 20080722
  Transmission Date: 20090109
  Serious: Yes (Other)
  Sender: FDA-Public Use
  Company Number: None

PATIENT
  Age: 53 Year
  Sex: Male
  Weight: 68.0396 kg

DRUGS (1)
  1. LEVAQUIN [Suspect]
     Indication: INFECTION
     Dosage: ONE TABLET DAILY FOR 10 DAYS PO
     Route: 048
     Dates: start: 20080605, end: 20080614

REACTIONS (2)
  - TENDON RUPTURE [None]
  - TENDONITIS [None]
